FAERS Safety Report 8552038-0 (Version None)
Quarter: 2012Q3

REPORT INFORMATION
  Report Type: 
  Country: None (occurrence: None)
  Receive Date: 20120731
  Receipt Date: 20120718
  Transmission Date: 20120928
  Serious: Yes (Other)
  Sender: FDA-Public Use
  Company Number: JP-AMGEN-JPNSP2012019750

PATIENT
  Age: 74 Year
  Sex: Female

DRUGS (14)
  1. LIMAPROST [Concomitant]
     Dosage: 5 UG, 2X/DAY
     Route: 048
     Dates: start: 20120321
  2. SENNOSIDES A+B [Concomitant]
     Dosage: 12 MG, 2X/DAY
     Route: 048
  3. AMINOLEBAN EN [Concomitant]
     Dosage: 50 G, 1X/DAY
     Route: 048
  4. ALDACTONE [Concomitant]
     Dosage: 100 MG, 1X/DAY
     Route: 048
  5. FAMOTIDINE [Concomitant]
     Dosage: 20 MG, 2X/DAY
     Route: 048
  6. MAGNESIUM OXIDE [Concomitant]
     Dosage: 0.5 G, 3X/DAY
     Route: 048
  7. GEFARNATE [Concomitant]
     Dosage: 50 MG, 3X/DAY
     Route: 048
  8. GEFANIL [Concomitant]
     Dosage: 50 MG, 3X/DAY
     Route: 048
  9. LIMAPROST [Concomitant]
     Dosage: 5 UG, 2X/DAY
     Route: 048
     Dates: end: 20120307
  10. LIVALO [Concomitant]
     Dosage: 1 MG, 1X/DAY
     Route: 048
  11. ENBREL [Suspect]
     Indication: RHEUMATOID ARTHRITIS
     Dosage: 25 MG, WEEKLY
     Route: 058
     Dates: start: 20110921, end: 20120229
  12. NIFELAT L [Concomitant]
     Dosage: 10 MG, 2X/DAY
     Route: 048
  13. PREDNISOLONE [Concomitant]
     Indication: RHEUMATOID ARTHRITIS
     Dosage: 5 MG, 2X/DAY
     Route: 048
  14. ISOLEUCINE W/LEUCINE/VALINE [Concomitant]
     Dosage: 4.74 G, 2X/DAY
     Route: 048

REACTIONS (1)
  - PURPURA [None]
